FAERS Safety Report 7437299-3 (Version None)
Quarter: 2011Q2

REPORT INFORMATION
  Report Type: 
  Country: None (occurrence: None)
  Receive Date: 20110426
  Receipt Date: 20110419
  Transmission Date: 20111010
  Serious: Yes (Death, Other)
  Sender: FDA-Public Use
  Company Number: FI-GENZYME-FLUD-1001094

PATIENT

DRUGS (7)
  1. FLUDARA [Suspect]
     Indication: STEM CELL TRANSPLANT
  2. CYCLOSPORINE [Concomitant]
     Indication: PROPHYLAXIS AGAINST GRAFT VERSUS HOST DISEASE
  3. FLUDARA [Suspect]
     Indication: HAEMATOLOGICAL MALIGNANCY
     Dosage: 30 MG/M2 X5
     Route: 065
  4. THYMOGLOBULIN [Suspect]
     Indication: PROPHYLAXIS AGAINST GRAFT VERSUS HOST DISEASE
     Dosage: UNK
     Route: 065
  5. TREOSULFAN [Suspect]
     Indication: HAEMATOLOGICAL MALIGNANCY
     Dosage: 14 G/M2 X3
     Route: 065
  6. TREOSULFAN [Suspect]
     Indication: STEM CELL TRANSPLANT
  7. METHOTREXATE [Concomitant]
     Indication: PROPHYLAXIS AGAINST GRAFT VERSUS HOST DISEASE

REACTIONS (4)
  - DEATH [None]
  - NEOPLASM MALIGNANT [None]
  - CHRONIC GRAFT VERSUS HOST DISEASE [None]
  - ACUTE GRAFT VERSUS HOST DISEASE [None]
